FAERS Safety Report 7873800-3 (Version None)
Quarter: 2011Q4

REPORT INFORMATION
  Report Type: 
  Country: None (occurrence: None)
  Receive Date: 20111030
  Receipt Date: 20110510
  Transmission Date: 20120403
  Serious: Yes (Other)
  Sender: FDA-Public Use
  Company Number: US-AMGEN-USASP2011024383

PATIENT
  Age: 42 Year
  Sex: Female

DRUGS (4)
  1. TREXALL [Concomitant]
     Dates: start: 20030101
  2. ENBREL [Suspect]
     Indication: PSORIATIC ARTHROPATHY
     Dosage: 25 MG, 2 TIMES/WK
     Dates: start: 20041001, end: 20050101
  3. HUMIRA [Concomitant]
  4. AZULFIDINE [Concomitant]

REACTIONS (7)
  - HYPOAESTHESIA [None]
  - THERAPEUTIC RESPONSE DECREASED [None]
  - MALAISE [None]
  - HYPERSENSITIVITY [None]
  - INJECTION SITE REACTION [None]
  - PSORIATIC ARTHROPATHY [None]
  - RED BLOOD CELL SEDIMENTATION RATE INCREASED [None]
